FAERS Safety Report 6811833-6 (Version None)
Quarter: 2010Q2

REPORT INFORMATION
  Report Type: 
  Country: None (occurrence: None)
  Receive Date: 20100628
  Receipt Date: 20100617
  Transmission Date: 20101027
  Serious: Yes (Other)
  Sender: FDA-Public Use
  Company Number: 2010JP003543

PATIENT
  Age: 12 Year
  Sex: Male

DRUGS (3)
  1. PROGRAF [Suspect]
     Indication: BONE MARROW TRANSPLANT
  2. PROGRAF [Suspect]
     Indication: CORD BLOOD TRANSPLANT THERAPY
  3. METHYLPREDNISOLONE [Concomitant]

REACTIONS (3)
  - KIDNEY FIBROSIS [None]
  - RENAL FAILURE CHRONIC [None]
  - RENAL TUBULAR ATROPHY [None]
